FAERS Safety Report 12380603 (Version 1)
Quarter: 2016Q2

REPORT INFORMATION
  Report Type: Spontaneous
  Country: US (occurrence: None)
  Receive Date: 20160517
  Receipt Date: 20160517
  Transmission Date: 20160815
  Serious: Yes (Other)
  Sender: FDA-Public Use
  Company Number: None

PATIENT
  Age: 53 Year
  Sex: Male
  Weight: 96.16 kg

DRUGS (12)
  1. SOMA [Concomitant]
     Active Substance: CARISOPRODOL
  2. OXYCODONE [Concomitant]
     Active Substance: OXYCODONE
  3. HCTZ/LISINOPRIL [Concomitant]
     Active Substance: HYDROCHLOROTHIAZIDE\LISINOPRIL
  4. AMITIZA [Suspect]
     Active Substance: LUBIPROSTONE
     Indication: CONSTIPATION
     Dosage: 60 CAPSULE(S) TWICE A DAY TAKEN BY MOUTH
     Route: 048
  5. ASA [Concomitant]
     Active Substance: ASPIRIN
  6. ALLOPURINOL. [Concomitant]
     Active Substance: ALLOPURINOL
  7. RANITIDINE. [Concomitant]
     Active Substance: RANITIDINE
  8. SIMVASTATIN. [Concomitant]
     Active Substance: SIMVASTATIN
  9. CENTURY MULTIVITAMINS [Concomitant]
  10. OXYCONTIN [Concomitant]
     Active Substance: OXYCODONE HYDROCHLORIDE
  11. ATENOLOL. [Concomitant]
     Active Substance: ATENOLOL
  12. FISH OIL [Concomitant]
     Active Substance: FISH OIL

REACTIONS (15)
  - Dry mouth [None]
  - Mood altered [None]
  - Feeling drunk [None]
  - Mental disorder [None]
  - Memory impairment [None]
  - Decreased appetite [None]
  - Loss of consciousness [None]
  - Dehydration [None]
  - Anger [None]
  - Aggression [None]
  - Somnolence [None]
  - Headache [None]
  - Antisocial behaviour [None]
  - Thinking abnormal [None]
  - Insomnia [None]

NARRATIVE: CASE EVENT DATE: 20160512
